FAERS Safety Report 4869043-8 (Version None)
Quarter: 2005Q4

REPORT INFORMATION
  Report Type: 
  Country: None (occurrence: None)
  Receive Date: 20051219
  Receipt Date: 20051212
  Transmission Date: 20060501
  Serious: Yes (Hospitalization)
  Sender: FDA-Public Use
  Company Number: 2005-02777

PATIENT
  Sex: Male

DRUGS (1)
  1. IMMUCYST [Suspect]
     Indication: BLADDER CANCER
     Dosage: 81.0 MG
     Route: 043
     Dates: start: 20050901, end: 20051101

REACTIONS (3)
  - ANTERIOR CHAMBER INFLAMMATION [None]
  - ARTHRITIS [None]
  - REITER'S SYNDROME [None]
